FAERS Safety Report 9746197 (Version 1)
Quarter: 2013Q4

REPORT INFORMATION
  Report Type: Spontaneous
  Country: US (occurrence: US)
  Receive Date: 20131211
  Receipt Date: 20131211
  Transmission Date: 20140711
  Serious: No
  Sender: FDA-Public Use
  Company Number: US-009507513-1312USA004501

PATIENT
  Sex: Male

DRUGS (2)
  1. ZOCOR [Suspect]
     Indication: BLOOD CHOLESTEROL INCREASED
     Dosage: UNK
     Route: 048
     Dates: start: 2011
  2. SIMVASTATIN TABLETS, USP [Suspect]
     Route: 048

REACTIONS (1)
  - Neuropathy peripheral [Recovering/Resolving]
